FAERS Safety Report 6193651-8 (Version None)
Quarter: 2009Q2

REPORT INFORMATION
  Report Type: 
  Country: None (occurrence: None)
  Receive Date: 20090518
  Receipt Date: 20090506
  Transmission Date: 20091009
  Serious: No
  Sender: FDA-Public Use
  Company Number: CA-ELI_LILLY_AND_COMPANY-CA200905001858

PATIENT
  Age: 45 Year
  Sex: Female

DRUGS (3)
  1. CYMBALTA [Suspect]
     Dosage: 60 MG, UNK
  2. WARFARIN SODIUM [Concomitant]
     Dosage: 3 MG, UNK
  3. WARFARIN SODIUM [Concomitant]
     Dosage: 2 MG, UNK

REACTIONS (1)
  - INTERNATIONAL NORMALISED RATIO INCREASED [None]
